FAERS Safety Report 9725825 (Version 3)
Quarter: 2014Q1

REPORT INFORMATION
  Report Type: Spontaneous
  Country: FR (occurrence: FR)
  Receive Date: 20131203
  Receipt Date: 20140218
  Transmission Date: 20141002
  Serious: Yes (Hospitalization)
  Sender: FDA-Public Use
  Company Number: FR-BRACCO-001023

PATIENT
  Age: 58 Year
  Sex: Female

DRUGS (3)
  1. MULTIHANCE [Suspect]
     Indication: NUCLEAR MAGNETIC RESONANCE IMAGING BRAIN
     Dates: start: 20120531, end: 20120531
  2. DOXYCYCLINE [Concomitant]
     Indication: ENDOCARDITIS
     Dosage: STOPPED IN AUTUMN 2012
     Dates: start: 2010
  3. PLAQUENIL [Concomitant]
     Indication: ENDOCARDITIS
     Dosage: STOPPED IN AUTUMN 2012
     Dates: start: 2010

REACTIONS (1)
  - Pancreatitis acute [Recovered/Resolved]
